FAERS Safety Report 12882213 (Version 1)
Quarter: 2016Q4

REPORT INFORMATION
  Report Type: Spontaneous
  Country: US (occurrence: US)
  Receive Date: 20161025
  Receipt Date: 20161025
  Transmission Date: 20170207
  Serious: Yes (Other)
  Sender: FDA-Public Use
  Company Number: US-JNJFOC-20161021488

PATIENT

DRUGS (4)
  1. LEVOFLOXACIN. [Suspect]
     Active Substance: LEVOFLOXACIN
     Indication: ANTIBIOTIC PROPHYLAXIS
     Dosage: POSTOPERTAIVE, ADMINISTERED FOR 3 TO 4 DAYS UNTIL DISCHARGE.
     Route: 042
  2. CLINDAMYCIN. [Suspect]
     Active Substance: CLINDAMYCIN
     Indication: ANTIBIOTIC PROPHYLAXIS
     Dosage: POSTOPERTAIVE, ADMINISTERED FOR 3 TO 4 DAYS UNTIL DISCHARGE.
     Route: 042
  3. LEVOFLOXACIN. [Suspect]
     Active Substance: LEVOFLOXACIN
     Indication: ANTIBIOTIC PROPHYLAXIS
     Dosage: PREOPERATIVE, WITHIN ONE HOUR PRIOR TO INCISION TIME
     Route: 042
  4. CLINDAMYCIN. [Suspect]
     Active Substance: CLINDAMYCIN
     Indication: ANTIBIOTIC PROPHYLAXIS
     Dosage: PREOPERATIVE, WITHIN ONE HOUR PRIOR TO INCISION TIME
     Route: 042

REACTIONS (2)
  - Fusobacterium infection [Unknown]
  - Alpha haemolytic streptococcal infection [Unknown]
